FAERS Safety Report 7128971-3 (Version None)
Quarter: 2010Q4

REPORT INFORMATION
  Report Type: 
  Country: None (occurrence: None)
  Receive Date: 20101130
  Receipt Date: 20101125
  Transmission Date: 20110411
  Serious: Yes (Hospitalization)
  Sender: FDA-Public Use
  Company Number: DE-ROCHE-741161

PATIENT
  Sex: Female
  Weight: 66 kg

DRUGS (10)
  1. TRASTUZUMAB [Suspect]
     Dosage: DOSE LEVEL: 6 MG/KG, FORM: VIAL, LAST DOSE PRIOR TO SAE 21 OCTOBER 2010
     Route: 042
     Dates: start: 20100730
  2. TRASTUZUMAB [Suspect]
     Dosage: TOTAL DOSE: 410 MG, DATE OF LAST DOSE PRIOR TO SAE: 11 NOVEMBER 2010
     Route: 042
  3. BEVACIZUMAB [Suspect]
     Dosage: DOSE LEVEL: 15 MG/KG, FORM: VIAL, LAST DOSE PRIOR TO SAE 21 OCTOBER 2010
     Route: 042
     Dates: start: 20100730
  4. BEVACIZUMAB [Suspect]
     Dosage: TOTAL DOSE: 1026 MG, DATE OF LAST DOSE PRIOR TO SAE: 11 NOVEMBER 2010
     Route: 042
  5. CARBOPLATIN [Suspect]
     Dosage: DOSE LEVEL: 6 AUC, FORM: VIAL, LAST DOSE PRIOR TO SAE 21 OCTOBER 2010
     Route: 042
     Dates: start: 20100730
  6. CARBOPLATIN [Suspect]
     Dosage: DOSE LEVEL: 6 AUC, DATE OF LAST DOSE PRIOR TO SAE: 11 NOVEMBER 2010
     Route: 042
  7. DOCETAXEL [Suspect]
     Dosage: DOSE LEVEL: 75 MG/M2. FORM: VIAL, LAST DOSE PRIOR TO SAE 21 OCTOBER 2010
     Route: 042
     Dates: start: 20100730
  8. DOCETAXEL [Suspect]
     Dosage: TOTAL DOSE: 135.25 MG, DATE OF LAST DOSE PRIOR TO SAE: 11 NOVEMBER 2010
     Route: 042
  9. CANDESARTAN CILEXETIL [Concomitant]
     Dates: start: 19930101
  10. SIMVASTATIN [Concomitant]
     Dates: start: 19930101

REACTIONS (4)
  - C-REACTIVE PROTEIN INCREASED [None]
  - DIARRHOEA [None]
  - NEUTROPENIA [None]
  - PANCYTOPENIA [None]
